FAERS Safety Report 9352251 (Version 1)
Quarter: 2013Q2

REPORT INFORMATION
  Report Type: Spontaneous
  Country: FR (occurrence: FR)
  Receive Date: 20130617
  Receipt Date: 20130617
  Transmission Date: 20140414
  Serious: Yes (Other)
  Sender: FDA-Public Use
  Company Number: FR-PFIZER INC-2013167901

PATIENT
  Age: 62 Year
  Sex: Male

DRUGS (13)
  1. DALACINE [Suspect]
     Dosage: 600 MG, 4X/DAY
     Route: 042
     Dates: start: 20130430, end: 20130509
  2. DALACINE [Suspect]
     Dosage: 600 MG, 4X/DAY
     Route: 048
     Dates: end: 20130509
  3. EUPANTOL [Suspect]
     Dosage: 40 MG, 1X/DAY
     Route: 048
     Dates: start: 20130502, end: 20130511
  4. ROCEPHINE [Suspect]
     Dosage: 2 G, 1X/DAY
     Route: 042
     Dates: start: 20130411, end: 20130504
  5. ENALAPRIL MALEATE [Concomitant]
     Dosage: 20 MG, 1X/DAY
     Route: 048
  6. ESIDREX [Concomitant]
     Dosage: 25 MG, 1X/DAY
     Route: 048
  7. KARDEGIC [Concomitant]
     Dosage: 75 MG, 1X/DAY
     Route: 048
  8. VITAMIN B1 AND B6 [Concomitant]
     Dosage: UNK
     Dates: end: 20130511
  9. GENTAMICIN [Concomitant]
  10. LOVENOX [Concomitant]
     Dosage: 0.4
  11. LASILIX [Concomitant]
     Dosage: 80 MG DAILY
  12. AMOXICILLIN [Concomitant]
     Dosage: 12G, DAILY
     Dates: start: 20130504, end: 20130509
  13. SIMVASTATIN [Concomitant]
     Dosage: UNK
     Dates: end: 20130511

REACTIONS (2)
  - Agranulocytosis [Recovered/Resolved]
  - Rash maculo-papular [Recovered/Resolved]
